FAERS Safety Report 15482525 (Version 2)
Quarter: 2019Q2

REPORT INFORMATION
  Report Type: Spontaneous
  Country: US (occurrence: US)
  Receive Date: 20181010
  Receipt Date: 20190425
  Transmission Date: 20190711
  Serious: No
  Sender: FDA-Public Use
  Company Number: US-SA-2018SA277124

PATIENT
  Age: 70 Year
  Sex: Female

DRUGS (1)
  1. DUPIXENT [Suspect]
     Active Substance: DUPILUMAB
     Indication: DERMATITIS ATOPIC
     Dosage: 300 MG, QOW
     Route: 058
     Dates: start: 20180612, end: 201904

REACTIONS (4)
  - Skin exfoliation [Recovering/Resolving]
  - Rash [Recovering/Resolving]
  - Visual impairment [Recovering/Resolving]
  - Pruritus [Recovering/Resolving]
